FAERS Safety Report 12743929 (Version 2)
Quarter: 2019Q4

REPORT INFORMATION
  Report Type: Spontaneous
  Country: US (occurrence: US)
  Receive Date: 20160914
  Receipt Date: 20191022
  Transmission Date: 20200122
  Serious: Yes (Death, Other)
  Sender: FDA-Public Use
  Company Number: US-PFIZER INC-2016431361

PATIENT
  Age: 66 Year
  Sex: Male

DRUGS (1)
  1. VIAGRA [Suspect]
     Active Substance: SILDENAFIL CITRATE
     Indication: ERECTILE DYSFUNCTION
     Dosage: 100 MG, REGULARLY
     Route: 048
     Dates: start: 2009, end: 2010

REACTIONS (3)
  - Malignant melanoma [Fatal]
  - Metastases to liver [Unknown]
  - Metastases to lung [Unknown]

NARRATIVE: CASE EVENT DATE: 20090320
